FAERS Safety Report 6820145-6 (Version None)
Quarter: 2010Q3

REPORT INFORMATION
  Report Type: 
  Country: None (occurrence: None)
  Receive Date: 20100707
  Receipt Date: 20100630
  Transmission Date: 20110219
  Serious: Yes (Disabling)
  Sender: FDA-Public Use
  Company Number: US-MERCK-1007USA00022

PATIENT
  Sex: Female

DRUGS (2)
  1. SINGULAIR [Suspect]
     Route: 048
     Dates: start: 20100510, end: 20100520
  2. LIPITOR [Concomitant]
     Route: 065

REACTIONS (2)
  - MUSCULAR WEAKNESS [None]
  - PAIN [None]
